FAERS Safety Report 24779250 (Version 7)
Quarter: 2025Q3

REPORT INFORMATION
  Report Type: Report from Study
  Country: US (occurrence: US)
  Receive Date: 20241226
  Receipt Date: 20250725
  Transmission Date: 20251020
  Serious: Yes (Hospitalization, Other)
  Sender: UCB
  Company Number: US-UCBSA-2024067312

PATIENT
  Age: 10 Year
  Sex: Male

DRUGS (4)
  1. FINTEPLA [Suspect]
     Active Substance: FENFLURAMINE
     Indication: Seizure
     Dosage: 4 MILLILITER, 2X/DAY (BID)
     Dates: start: 20220811
  2. FINTEPLA [Suspect]
     Active Substance: FENFLURAMINE
     Indication: Lennox-Gastaut syndrome
     Dosage: 11 MILLIGRAM, 2X/DAY (BID)
     Route: 048
     Dates: start: 202308
  3. CYPROHEPTADINE [Concomitant]
     Active Substance: CYPROHEPTADINE
     Indication: Sleep disorder
     Route: 048
     Dates: start: 202404
  4. DIAMOX ER [Concomitant]
     Indication: Motion sickness
     Dosage: 125 MILLIGRAM, 2X/DAY (BID)
     Route: 048
     Dates: start: 202503

REACTIONS (10)
  - Tricuspid valve incompetence [Not Recovered/Not Resolved]
  - Hospitalisation [Not Recovered/Not Resolved]
  - Seizure [Not Recovered/Not Resolved]
  - Petit mal epilepsy [Unknown]
  - Clonic convulsion [Unknown]
  - Tonic convulsion [Unknown]
  - Anxiety [Recovered/Resolved]
  - Atonic seizures [Unknown]
  - Sleep deficit [Unknown]
  - Illness [Unknown]

NARRATIVE: CASE EVENT DATE: 20241218
